FAERS Safety Report 13008529 (Version 1)
Quarter: 2016Q4

REPORT INFORMATION
  Report Type: Spontaneous
  Country: FR (occurrence: FR)
  Receive Date: 20161208
  Receipt Date: 20161208
  Transmission Date: 20170207
  Serious: Yes (Other)
  Sender: FDA-Public Use
  Company Number: FR-SHIRE-FR201618431

PATIENT
  Age: 59 Year
  Sex: Female

DRUGS (2)
  1. 476 (MESALAZINE/MESALAMINE) [Suspect]
     Active Substance: MESALAMINE
     Indication: ENTERITIS
     Dosage: 1000 MG, 1X/DAY:QD
     Route: 048
     Dates: start: 1996, end: 1998
  2. 476 (MESALAZINE/MESALAMINE) [Suspect]
     Active Substance: MESALAMINE
     Indication: GASTROINTESTINAL INFLAMMATION
     Dosage: 1500 MG, 1X/DAY:QD
     Route: 048
     Dates: start: 1995

REACTIONS (2)
  - Systemic lupus erythematosus [Recovered/Resolved]
  - Product use issue [Recovered/Resolved]

NARRATIVE: CASE EVENT DATE: 1995
